FAERS Safety Report 13360255 (Version 2)
Quarter: 2017Q1

REPORT INFORMATION
  Report Type: Spontaneous
  Country: US (occurrence: US)
  Receive Date: 20170322
  Receipt Date: 20170322
  Transmission Date: 20170429
  Serious: Yes (Other)
  Sender: FDA-Public Use
  Company Number: US-INSYS THERAPEUTICS, INC-INS201703-000186

PATIENT
  Sex: Female

DRUGS (7)
  1. SUBSYS [Suspect]
     Active Substance: FENTANYL
     Indication: FIBROMYALGIA
  2. ROXICODONE [Concomitant]
     Active Substance: OXYCODONE HYDROCHLORIDE
  3. NUCYNTA [Concomitant]
     Active Substance: TAPENTADOL HYDROCHLORIDE
  4. BUTRANS [Concomitant]
     Active Substance: BUPRENORPHINE
  5. SUBSYS [Suspect]
     Active Substance: FENTANYL
     Indication: BACK PAIN
     Route: 060
  6. OXYMORPHONE [Concomitant]
     Active Substance: OXYMORPHONE
  7. SUBSYS [Suspect]
     Active Substance: FENTANYL
     Indication: NECK PAIN
     Route: 060

REACTIONS (3)
  - Injury [Unknown]
  - Drug dependence [Unknown]
  - Drug withdrawal syndrome [Unknown]
